FAERS Safety Report 25539098 (Version 1)
Quarter: 2025Q3

REPORT INFORMATION
  Report Type: Report from Study
  Country: CA (occurrence: CA)
  Receive Date: 20250710
  Receipt Date: 20250710
  Transmission Date: 20251020
  Serious: Yes (Other)
  Sender: NORDIC PHARMA
  Company Number: CA-NORDICGR-063149

PATIENT
  Sex: Male

DRUGS (3)
  1. METHOTREXATE [Suspect]
     Active Substance: METHOTREXATE
     Indication: Product used for unknown indication
  2. COSENTYX [Concomitant]
     Active Substance: SECUKINUMAB
     Indication: Psoriatic arthropathy
     Dosage: 1 EVERY 1 MONTHS
     Route: 058
  3. HUMIRA [Concomitant]
     Active Substance: ADALIMUMAB
     Indication: Product used for unknown indication

REACTIONS (3)
  - Myocardial infarction [Unknown]
  - Inappropriate schedule of product administration [Unknown]
  - Arthralgia [Unknown]
